FAERS Safety Report 12798131 (Version 1)
Quarter: 2016Q3

REPORT INFORMATION
  Report Type: Spontaneous
  Country: US (occurrence: US)
  Receive Date: 20160930
  Receipt Date: 20160930
  Transmission Date: 20161109
  Serious: No
  Sender: FDA-Public Use
  Company Number: US-BIOGEN-2016BI00296963

PATIENT
  Sex: Female

DRUGS (1)
  1. AVONEX [Suspect]
     Active Substance: INTERFERON BETA-1A
     Indication: MULTIPLE SCLEROSIS
     Route: 065
     Dates: start: 20120828, end: 20130501

REACTIONS (9)
  - Pain [Unknown]
  - Axillary mass [Unknown]
  - Trigeminal neuralgia [Not Recovered/Not Resolved]
  - Blood sodium abnormal [Recovered/Resolved]
  - Memory impairment [Unknown]
  - Muscle spasms [Recovered/Resolved]
  - Aphasia [Recovered/Resolved]
  - Multiple sclerosis relapse [Recovered/Resolved]
  - Logorrhoea [Not Recovered/Not Resolved]
